FAERS Safety Report 7005297-X (Version None)
Quarter: 2010Q3

REPORT INFORMATION
  Report Type: 
  Country: None (occurrence: None)
  Receive Date: 20100921
  Receipt Date: 20100910
  Transmission Date: 20110219
  Serious: Yes (Hospitalization)
  Sender: FDA-Public Use
  Company Number: DE-ELI_LILLY_AND_COMPANY-DE201009002772

PATIENT
  Age: 71 Year
  Sex: Male
  Weight: 90 kg

DRUGS (6)
  1. EFFIENT [Suspect]
     Indication: ACUTE MYOCARDIAL INFARCTION
     Dosage: 10 MG, UNKNOWN
     Route: 048
     Dates: start: 20100301
  2. ACETYLSALICYLIC ACID [Concomitant]
     Indication: CORONARY ARTERY DISEASE
     Dosage: 100 MG, UNKNOWN
     Route: 048
  3. EZETROL [Concomitant]
     Indication: HYPERLIPIDAEMIA
     Dosage: 10 MG, UNKNOWN
     Route: 048
     Dates: start: 20070101
  4. SIMVASTATIN SANDOZ [Concomitant]
     Indication: HYPERLIPIDAEMIA
     Dosage: 40 MG, UNK
  5. BISOPROLOL RATIOPHARM [Concomitant]
     Indication: HYPERTENSION
     Dosage: 10 MG, UNKNOWN
     Route: 048
  6. CORDINATE PLUS [Concomitant]
     Dosage: 1 D/F, DAILY (1/D)
     Route: 065

REACTIONS (3)
  - COAGULOPATHY [None]
  - FALL [None]
  - SUBCUTANEOUS HAEMATOMA [None]
